FAERS Safety Report 7218097-2 (Version None)
Quarter: 2011Q1

REPORT INFORMATION
  Report Type: 
  Country: None (occurrence: None)
  Receive Date: 20110110
  Receipt Date: 20101228
  Transmission Date: 20110831
  Serious: Yes (Hospitalization, Other)
  Sender: FDA-Public Use
  Company Number: US-MERCK-1011USA00087

PATIENT
  Age: 44 Year
  Sex: Female

DRUGS (9)
  1. PROPRAL [Concomitant]
     Route: 065
  2. EPOGEN [Concomitant]
     Route: 065
  3. INVANZ [Suspect]
     Indication: ESCHERICHIA INFECTION
     Route: 065
     Dates: start: 20101021, end: 20101028
  4. ULORIC [Concomitant]
     Route: 065
  5. CELLCEPT [Concomitant]
     Route: 065
  6. AMLODIPINE [Concomitant]
     Route: 065
  7. PREDNISONE [Concomitant]
     Route: 065
  8. SIMVASTAD [Concomitant]
     Route: 065
  9. COUMADIN [Concomitant]
     Route: 065

REACTIONS (6)
  - HALLUCINATION, VISUAL [None]
  - PSYCHOTIC DISORDER [None]
  - DELIRIUM [None]
  - HALLUCINATION [None]
  - TACHYPHRENIA [None]
  - AGITATION [None]
